FAERS Safety Report 9442615 (Version 1)
Quarter: 2013Q3

REPORT INFORMATION
  Report Type: Spontaneous
  Country: FR (occurrence: FR)
  Receive Date: 20130806
  Receipt Date: 20130806
  Transmission Date: 20140515
  Serious: Yes (Hospitalization)
  Sender: FDA-Public Use
  Company Number: FR-PFIZER INC-2013221879

PATIENT
  Age: 49 Year
  Sex: Female

DRUGS (1)
  1. SOLU-MEDROL [Suspect]
     Indication: NEUROMYELITIS OPTICA
     Dosage: UNK
     Route: 040
     Dates: start: 20130701, end: 20130705

REACTIONS (1)
  - Cerebral haematoma [Recovering/Resolving]
